FAERS Safety Report 5725032-2 (Version None)
Quarter: 2008Q2

REPORT INFORMATION
  Report Type: 
  Country: None (occurrence: None)
  Receive Date: 20080429
  Receipt Date: 20080421
  Transmission Date: 20081010
  Serious: Yes (Other)
  Sender: FDA-Public Use
  Company Number: 20084730

PATIENT
  Age: 58 Year
  Sex: Male

DRUGS (3)
  1. LIORESAL [Suspect]
     Indication: MUSCLE SPASTICITY
     Dosage: DAILY, INTRATHECAL - SEE B
     Route: 037
  2. TEGRETOL [Concomitant]
  3. RIVOTRIL [Concomitant]

REACTIONS (4)
  - COLOUR BLINDNESS [None]
  - INCORRECT DOSE ADMINISTERED [None]
  - ROAD TRAFFIC ACCIDENT [None]
  - VISION BLURRED [None]
